FAERS Safety Report 16521148 (Version 2)
Quarter: 2019Q3

REPORT INFORMATION
  Report Type: Spontaneous
  Country: US (occurrence: US)
  Receive Date: 20190702
  Receipt Date: 20190702
  Transmission Date: 20191004
  Serious: No
  Sender: FDA-Public Use
  Company Number: US-GALDERMA-US18040365

PATIENT
  Age: 17 Year
  Sex: Female

DRUGS (3)
  1. PROACTIV MD ADAPALENE ACNE TREATMENT [Suspect]
     Active Substance: ADAPALENE
     Indication: PRODUCT USED FOR UNKNOWN INDICATION
     Dosage: 0.1%
     Route: 061
     Dates: start: 20180902, end: 20180918
  2. PROACTIV MD DEEP CLEANSING FACE WASH [Concomitant]
     Active Substance: COSMETICS
     Route: 061
     Dates: start: 20180902, end: 20180918
  3. PROACTIV GREEN TEA MOISTURIZER [Concomitant]
     Active Substance: COSMETICS
     Route: 061
     Dates: start: 20180902, end: 20180918

REACTIONS (2)
  - Eye swelling [Recovering/Resolving]
  - Swelling of eyelid [Recovering/Resolving]

NARRATIVE: CASE EVENT DATE: 20180907
